FAERS Safety Report 16572946 (Version 1)
Quarter: 2019Q3

REPORT INFORMATION
  Report Type: Spontaneous
  Country: PL (occurrence: PL)
  Receive Date: 20190715
  Receipt Date: 20190715
  Transmission Date: 20191004
  Serious: Yes (Hospitalization, Other)
  Sender: FDA-Public Use
  Company Number: PL-EPIC PHARMA LLC-2019EPC00184

PATIENT
  Age: 77 Year

DRUGS (1)
  1. MORPHINE SULFATE. [Suspect]
     Active Substance: MORPHINE SULFATE
     Indication: PAIN
     Dosage: 400 MG, 1X/DAY
     Route: 065

REACTIONS (3)
  - Accidental overdose [Recovered/Resolved]
  - Multiple organ dysfunction syndrome [Recovered/Resolved]
  - Product prescribing issue [Recovered/Resolved]
